FAERS Safety Report 8699300 (Version 2)
Quarter: 2012Q4

REPORT INFORMATION
  Report Type: 
  Country: US (occurrence: US)
  Receive Date: 20120802
  Receipt Date: 20120920
  Transmission Date: 20130627
  Serious: Yes (Other)
  Sender: FDA-Public Use
  Company Number: US-BRISTOL-MYERS SQUIBB COMPANY-16803272

PATIENT
  Age: 56 Year
  Sex: Female

DRUGS (9)
  1. ABATACEPT SUBQ INJECTION 125MG/ML [Suspect]
     Indication: RHEUMATOID ARTHRITIS
     Dosage: 125mg SQ weekly
     Route: 058
     Dates: start: 201104
  2. SYNTHROID [Concomitant]
  3. FISH OIL [Concomitant]
  4. VITAMIN D [Concomitant]
  5. CALCIUM [Concomitant]
  6. CETIRIZINE [Concomitant]
  7. VITAMIN C [Concomitant]
  8. VITAMIN B6 [Concomitant]
  9. METHOTREXATE [Concomitant]

REACTIONS (1)
  - Synovial cyst [Unknown]
